FAERS Safety Report 7964464-9 (Version None)
Quarter: 2011Q4

REPORT INFORMATION
  Report Type: 
  Country: None (occurrence: None)
  Receive Date: 20111208
  Receipt Date: 20111129
  Transmission Date: 20120403
  Serious: Yes (Other)
  Sender: FDA-Public Use
  Company Number: US-BAYER-2011-116252

PATIENT
  Age: 32 Year
  Sex: Female
  Weight: 79 kg

DRUGS (5)
  1. YASMIN [Suspect]
     Indication: HORMONE THERAPY
  2. IBUPROFEN (ADVIL) [Concomitant]
     Dosage: UNK UNK, Q1MON
  3. YASMIN [Suspect]
     Indication: CONTRACEPTION
     Dosage: UNK
     Dates: start: 20030701, end: 20040801
  4. YAZ [Suspect]
     Indication: CONTRACEPTION
     Dosage: UNK
     Dates: start: 20030701, end: 20040801
  5. YAZ [Suspect]
     Indication: HORMONE THERAPY

REACTIONS (3)
  - OEDEMA PERIPHERAL [None]
  - PAIN IN EXTREMITY [None]
  - DEEP VEIN THROMBOSIS [None]
